FAERS Safety Report 6217047-5 (Version None)
Quarter: 2009Q2

REPORT INFORMATION
  Report Type: 
  Country: None (occurrence: None)
  Receive Date: 20090606
  Receipt Date: 20090527
  Transmission Date: 20091009
  Serious: Yes (Other)
  Sender: FDA-Public Use
  Company Number: US-PFIZER INC-2006012099

PATIENT
  Sex: Female
  Weight: 68.027 kg

DRUGS (22)
  1. NEURONTIN [Suspect]
     Indication: FIBROMYALGIA
     Dosage: UNK
     Dates: start: 20010101, end: 20030101
  2. NEURONTIN [Suspect]
     Indication: INFLAMMATION
     Dosage: UNK
     Dates: start: 20040101, end: 20050101
  3. NEURONTIN [Suspect]
     Indication: NEURALGIA
  4. CELEBREX [Suspect]
     Indication: FIBROMYALGIA
     Route: 065
  5. CELEBREX [Suspect]
     Indication: INFLAMMATION
  6. LYRICA [Suspect]
     Indication: FIBROMYALGIA
     Dosage: 25 MG, 1X/DAY
     Dates: start: 20060101, end: 20060101
  7. LYRICA [Suspect]
     Indication: INFLAMMATION
     Dosage: 50 MG, 1X/DAY
     Dates: start: 20060101, end: 20060101
  8. LYRICA [Suspect]
     Indication: NEURALGIA
     Dosage: 75 MG, 1X/DAY
     Dates: start: 20060101, end: 20060101
  9. LYRICA [Suspect]
     Dosage: 100 MG, 1X/DAY
     Dates: start: 20060101, end: 20060101
  10. ALL OTHER THERAPEUTIC PRODUCTS [Concomitant]
     Route: 065
  11. EFFEXOR [Concomitant]
     Route: 065
  12. DIAZEPAM [Concomitant]
     Route: 065
  13. HYDROCODONE BITARTRATE [Concomitant]
     Route: 065
  14. CARDIZEM [Concomitant]
     Route: 065
  15. TOPROL-XL [Concomitant]
     Route: 065
  16. AMITRIPTLINE HYDROCHLORIDE TAB [Concomitant]
     Route: 065
  17. HYDROCHLOROTHIAZIDE [Concomitant]
     Route: 065
  18. ZETIA [Concomitant]
     Route: 065
  19. PREVACID [Concomitant]
     Route: 065
  20. PROVIGIL [Concomitant]
     Route: 065
  21. PREMPRO [Concomitant]
     Route: 065
  22. VALIUM [Concomitant]
     Dosage: UNK

REACTIONS (23)
  - BACK PAIN [None]
  - CHEST DISCOMFORT [None]
  - CLOSTRIDIAL INFECTION [None]
  - DEPRESSION [None]
  - DRUG INEFFECTIVE [None]
  - EPSTEIN-BARR VIRUS INFECTION [None]
  - FALL [None]
  - FIBROMYALGIA [None]
  - GAIT DISTURBANCE [None]
  - GASTRITIS [None]
  - HEAD INJURY [None]
  - HYPERTENSION [None]
  - INCREASED APPETITE [None]
  - INTERVERTEBRAL DISC INJURY [None]
  - INTERVERTEBRAL DISC PROTRUSION [None]
  - NAUSEA [None]
  - NEURALGIA [None]
  - OEDEMA [None]
  - SCIATICA [None]
  - SOMNOLENCE [None]
  - STAPHYLOCOCCAL INFECTION [None]
  - VISION BLURRED [None]
  - WEIGHT INCREASED [None]
